FAERS Safety Report 17268686 (Version 3)
Quarter: 2020Q1

REPORT INFORMATION
  Report Type: Spontaneous
  Country: DK (occurrence: DK)
  Receive Date: 20200114
  Receipt Date: 20200121
  Transmission Date: 20200409
  Serious: Yes (Death)
  Sender: FDA-Public Use
  Company Number: DK-PFIZER INC-2020012271

PATIENT
  Age: 32 Year
  Sex: Male

DRUGS (16)
  1. FLUCONAZOLE. [Suspect]
     Active Substance: FLUCONAZOLE
     Indication: MENINGITIS CANDIDA
     Dosage: 800 MG, 1X/DAY (HIGH DOSE)
  2. PREDNISONE. [Concomitant]
     Active Substance: PREDNISONE
     Indication: LIVER TRANSPLANT REJECTION
     Dosage: UNK, (STANDARD DOSAGES)
  3. AMPHOTERICIN B. [Suspect]
     Active Substance: AMPHOTERICIN B
     Indication: MENINGITIS CANDIDA
     Dosage: UNK, (DISCONTINUED AFTER +84 DAYS)
     Route: 037
  4. TACROLIMUS. [Concomitant]
     Active Substance: TACROLIMUS
     Indication: LIVER TRANSPLANT REJECTION
     Dosage: UNK, (STANDARD DOSAGES)
  5. CIPROFLOXACIN. [Concomitant]
     Active Substance: CIPROFLOXACIN
     Indication: MENINGITIS CANDIDA
     Dosage: UNK, (EMPIRICAL TREATMENT)
  6. AMPHOTERICIN B. [Suspect]
     Active Substance: AMPHOTERICIN B
     Dosage: UNK
  7. FLUCYTOSINE. [Suspect]
     Active Substance: FLUCYTOSINE
     Indication: MENINGITIS CANDIDA
     Dosage: UNK
  8. FLUCYTOSINE. [Suspect]
     Active Substance: FLUCYTOSINE
     Dosage: UNK
  9. CASPOFUNGIN [Suspect]
     Active Substance: CASPOFUNGIN
     Indication: MENINGITIS CANDIDA
     Dosage: UNK
     Route: 037
  10. MEROPENEM. [Concomitant]
     Active Substance: MEROPENEM
     Indication: MENINGITIS CANDIDA
     Dosage: UNK, (EMPIRICAL TREATMENT)
  11. MEROPENEM. [Concomitant]
     Active Substance: MEROPENEM
     Indication: EVIDENCE BASED TREATMENT
  12. CIPROFLOXACIN. [Concomitant]
     Active Substance: CIPROFLOXACIN
     Indication: EVIDENCE BASED TREATMENT
  13. ACICLOVIR [Concomitant]
     Active Substance: ACYCLOVIR
     Indication: MENINGITIS CANDIDA
     Dosage: UNK, (EMPIRICAL TREATMENT)
  14. AMBISOME [Suspect]
     Active Substance: AMPHOTERICIN B
     Indication: MENINGITIS CANDIDA
     Dosage: UNK
  15. ACICLOVIR [Concomitant]
     Active Substance: ACYCLOVIR
     Indication: EVIDENCE BASED TREATMENT
  16. MYCOPHENOLATE MOFETIL. [Concomitant]
     Active Substance: MYCOPHENOLATE MOFETIL
     Indication: LIVER TRANSPLANT REJECTION
     Dosage: UNK, (STANDARD DOSAGES)

REACTIONS (1)
  - Toxicity to various agents [Fatal]
